FAERS Safety Report 5549078-2 (Version None)
Quarter: 2007Q4

REPORT INFORMATION
  Report Type: 
  Country: None (occurrence: None)
  Receive Date: 20071210
  Receipt Date: 20071204
  Transmission Date: 20080405
  Serious: Yes (Death)
  Sender: FDA-Public Use
  Company Number: 163-21880-07120163

PATIENT
  Age: 83 Year
  Sex: Male

DRUGS (2)
  1. REVLIMID [Suspect]
     Indication: MYELODYSPLASTIC SYNDROME
     Dosage: DAILY FOR 28 DAYS, ORAL; 10 MG, DAILY FOR 28 DAYS, ORAL
     Route: 048
     Dates: start: 20071109, end: 20070101
  2. REVLIMID [Suspect]
     Indication: MYELODYSPLASTIC SYNDROME
     Dosage: DAILY FOR 28 DAYS, ORAL; 10 MG, DAILY FOR 28 DAYS, ORAL
     Route: 048
     Dates: start: 20070810, end: 20071001

REACTIONS (1)
  - DEATH [None]
